FAERS Safety Report 7006880-8 (Version None)
Quarter: 2010Q3

REPORT INFORMATION
  Report Type: 
  Country: None (occurrence: None)
  Receive Date: 20100922
  Receipt Date: 20100908
  Transmission Date: 20110219
  Serious: Yes (Other)
  Sender: FDA-Public Use
  Company Number: US-PAR PHARMACEUTICAL, INC-2010SCPR001988

PATIENT

DRUGS (1)
  1. NASCOBAL [Suspect]
     Indication: VITAMIN B12 DEFICIENCY
     Dosage: 1 DF, WEEKLY
     Route: 045
     Dates: start: 20100528, end: 20100701

REACTIONS (4)
  - APPLICATION SITE DISCOMFORT [None]
  - ISCHAEMIC STROKE [None]
  - PRODUCT FORMULATION ISSUE [None]
  - PRODUCT QUALITY ISSUE [None]
